FAERS Safety Report 9300116 (Version 6)
Quarter: 2014Q4

REPORT INFORMATION
  Report Type: Report from Study
  Country: DE (occurrence: DE)
  Receive Date: 20130521
  Receipt Date: 20141030
  Transmission Date: 20150529
  Serious: Yes (Death, Hospitalization, Other)
  Sender: FDA-Public Use
  Company Number: DE-ROCHE-1226928

PATIENT
  Age: 77 Year
  Sex: Male
  Weight: 70 kg

DRUGS (16)
  1. CAPECITABINE. [Suspect]
     Active Substance: CAPECITABINE
     Route: 048
     Dates: start: 20130214, end: 20130730
  2. MCP [Concomitant]
     Active Substance: METOCLOPRAMIDE HYDROCHLORIDE
     Route: 065
     Dates: start: 20130403, end: 201307
  3. ERYTHROCYTE CONCENTRATE [Concomitant]
     Active Substance: HUMAN RED BLOOD CELL
     Route: 065
     Dates: start: 20130506, end: 20130606
  4. CAPECITABINE. [Suspect]
     Active Substance: CAPECITABINE
     Indication: COLON CANCER
     Dosage: TWO WEEK FOLLOWED BY ONE WEEK BREAK
     Route: 048
     Dates: start: 20130403
  5. METOHEXAL (GERMANY) [Concomitant]
     Indication: HYPERTENSION
     Route: 048
     Dates: start: 1998
  6. PRAVASTATIN [Concomitant]
     Active Substance: PRAVASTATIN\PRAVASTATIN SODIUM
     Indication: HYPERCHOLESTEROLAEMIA
     Route: 048
     Dates: start: 1998
  7. ASS100 [Concomitant]
     Active Substance: PENTOXIFYLLINE
     Indication: CORONARY ARTERY DISEASE
     Route: 065
     Dates: start: 1999
  8. BEVACIZUMAB [Suspect]
     Active Substance: BEVACIZUMAB
     Route: 042
     Dates: start: 20130628, end: 20130628
  9. TORASEMID [Concomitant]
     Active Substance: TORSEMIDE
     Indication: POLYURIA
     Route: 065
     Dates: start: 1998
  10. MIRTAZAPIN [Concomitant]
     Active Substance: MIRTAZAPINE
     Indication: DEPRESSION
     Route: 048
  11. ENALAPRIL [Concomitant]
     Active Substance: ENALAPRIL
     Indication: HYPERTENSION
     Route: 048
     Dates: start: 1998
  12. KEVATRIL [Concomitant]
     Active Substance: GRANISETRON HYDROCHLORIDE
     Route: 065
     Dates: start: 20130403, end: 20130628
  13. DEXAMETHASON [Concomitant]
     Active Substance: DEXAMETHASONE
     Route: 065
     Dates: start: 20130403, end: 20130628
  14. BEVACIZUMAB [Suspect]
     Active Substance: BEVACIZUMAB
     Indication: COLON CANCER
     Route: 042
     Dates: start: 20130403, end: 20130403
  15. NUBRAL [Concomitant]
     Indication: PALMAR-PLANTAR ERYTHRODYSAESTHESIA SYNDROME
     Route: 065
     Dates: start: 20130524
  16. ENSURE [Concomitant]
     Active Substance: AMINO ACIDS\DEXTROSE\ELECTROLYTES NOS\SOYBEAN OIL\VITAMINS
     Route: 065
     Dates: start: 20130426, end: 201308

REACTIONS (5)
  - Blood pressure increased [Recovered/Resolved]
  - Altered state of consciousness [Recovered/Resolved]
  - Malignant neoplasm progression [Fatal]
  - Pyrexia [Recovered/Resolved]
  - Sepsis [Recovered/Resolved]

NARRATIVE: CASE EVENT DATE: 20130516
